FAERS Safety Report 17968729 (Version 8)
Quarter: 2021Q1

REPORT INFORMATION
  Report Type: Spontaneous
  Country: US (occurrence: US)
  Receive Date: 20200701
  Receipt Date: 20210317
  Transmission Date: 20210419
  Serious: Yes (Other)
  Sender: FDA-Public Use
  Company Number: US-SA-2020SA166934

PATIENT
  Age: 38 Year
  Sex: Female

DRUGS (2)
  1. KEVZARA [Suspect]
     Active Substance: SARILUMAB
     Dosage: 200 MG, QOW
     Route: 058
     Dates: start: 2020, end: 2020
  2. KEVZARA [Suspect]
     Active Substance: SARILUMAB
     Indication: PRODUCT USED FOR UNKNOWN INDICATION
     Dosage: 200 MG, QOW
     Route: 058
     Dates: start: 202006, end: 2020

REACTIONS (9)
  - Injection site pruritus [Recovered/Resolved]
  - Liver function test increased [Unknown]
  - Unevaluable event [Unknown]
  - Suspected COVID-19 [Unknown]
  - Injection site erythema [Unknown]
  - Respiratory tract infection [Unknown]
  - Infection [Unknown]
  - Urinary tract infection [Unknown]
  - Injection site rash [Unknown]

NARRATIVE: CASE EVENT DATE: 2020
